FAERS Safety Report 23078040 (Version 2)
Quarter: 2023Q4

REPORT INFORMATION
  Report Type: Spontaneous
  Country: US (occurrence: None)
  Receive Date: 20231018
  Receipt Date: 20231021
  Transmission Date: 20240110
  Serious: Yes (Other)
  Sender: FDA-Public Use
  Company Number: US-ROCHE-3439743

PATIENT
  Age: 60 Year
  Sex: Female
  Weight: 152.9 kg

DRUGS (31)
  1. XOLAIR [Suspect]
     Active Substance: OMALIZUMAB
     Indication: Idiopathic urticaria
     Dosage: 150 MG/ML
     Route: 058
     Dates: start: 202212
  2. XOLAIR [Suspect]
     Active Substance: OMALIZUMAB
  3. XOLAIR [Suspect]
     Active Substance: OMALIZUMAB
  4. XOLAIR [Suspect]
     Active Substance: OMALIZUMAB
     Indication: Asthma
     Route: 058
     Dates: start: 20171129
  5. XOLAIR [Suspect]
     Active Substance: OMALIZUMAB
  6. XOLAIR [Suspect]
     Active Substance: OMALIZUMAB
  7. BENADRYL [Concomitant]
     Active Substance: DIPHENHYDRAMINE HYDROCHLORIDE
  8. PROAIR HFA [Concomitant]
     Active Substance: ALBUTEROL SULFATE
     Dosage: 2 PUFFS EVERY 4 HOURS AS NEEDED
  9. NORVASC [Concomitant]
     Active Substance: AMLODIPINE BESYLATE
     Dosage: 5MG 1 TAB BY MOUTH AT BEDTIME
     Route: 048
  10. ALLEGRA [Concomitant]
     Active Substance: FEXOFENADINE HYDROCHLORIDE
     Dosage: 1 TAB BY MOUTH AS NEEDED
     Route: 048
  11. LASIX [Concomitant]
     Active Substance: FUROSEMIDE
     Dosage: 20MG ONE TAB BY MOUTH DAILY AS NEEDED
     Route: 048
  12. SYNTHROID [Concomitant]
     Active Substance: LEVOTHYROXINE SODIUM
     Dosage: 150MCG 1 TAB DAILY BY MOUTH
     Route: 048
  13. ZESTORETIC [Concomitant]
     Active Substance: HYDROCHLOROTHIAZIDE\LISINOPRIL
     Dosage: 20/25MG 1 TAB BY MOUTH AT BEDTIME
     Route: 048
  14. MAGNESIUM [Concomitant]
     Active Substance: MAGNESIUM
     Dosage: TAKE 500 MG BY MOUTH DAILY
     Route: 048
  15. GLUCOPHAGE XR [Concomitant]
     Active Substance: METFORMIN HYDROCHLORIDE
     Dosage: 1000MG TWICE DAILY BY MOUTH WITH BREAKFAST
     Route: 048
  16. SINGULAIR [Concomitant]
     Active Substance: MONTELUKAST SODIUM
     Dosage: 10MG ONCE DAILY BY MOUTH IN MORNING
     Route: 048
  17. ZOCOR [Concomitant]
     Active Substance: SIMVASTATIN
     Dosage: 20MG ONCE DAILY BY MOUTH AT BED TIME
     Route: 048
  18. REGADENOSON [Concomitant]
     Active Substance: REGADENOSON
  19. EPINEPHRINE [Concomitant]
     Active Substance: EPINEPHRINE
     Dosage: 0.3MG BY INTAMUSCULAR ROUTE AS DIRECTED
     Route: 030
  20. ECOTRIN [Concomitant]
     Active Substance: ASPIRIN
     Dosage: 1 TAB BY MOUTH AT BED TIME
     Route: 048
  21. VITAMIN D3 [Concomitant]
     Active Substance: CHOLECALCIFEROL
     Dosage: 2000 UNIT 1 CAP ORALLY IN MORNING
     Route: 048
  22. FLAXSEED [Concomitant]
     Active Substance: FLAX SEED
     Indication: Dry eye
     Dosage: TAKE 1 TABET BY MOUTH IN MORNING AND 1 IN EVENING
     Route: 048
  23. LAXIS [Concomitant]
     Dosage: 1 TAB BY MOUTH IF NEED EACH DAY
     Route: 048
  24. BASAGLAR [Concomitant]
     Active Substance: INSULIN GLARGINE
     Dosage: 100 UNIT/ML
     Route: 058
     Dates: start: 20230110
  25. LEVOXYL [Concomitant]
     Active Substance: LEVOTHYROXINE SODIUM
     Dosage: TAKE 1 TAB BY MOUTH IN MORNING
     Route: 048
  26. CLARITIN [Concomitant]
     Active Substance: LORATADINE
     Dosage: TAKE 1 TAB EACH DAY IF NEEDED
     Route: 048
  27. VITAMIN A [Concomitant]
     Active Substance: VITAMIN A
     Dosage: TAKE 1 TAB IN MORNING AND 1 IN EVENING
     Route: 048
  28. VITAMIN C [Concomitant]
     Active Substance: ASCORBIC ACID
     Dosage: TAKE 1 TAB IN MORNING AND 1 IN EVENING
  29. ZINC [Concomitant]
     Active Substance: PYRITHIONE ZINC\ZINC\ZINC CHLORIDE
     Dosage: TAKE 1 TAB IN MORNING AND 1 IN EVENING
     Route: 048
  30. COPPER [Concomitant]
     Active Substance: COPPER
     Dosage: TAKE 1 TAB IN MORNING AND 1 IN EVENING
     Route: 048
  31. FENTANYL [Concomitant]
     Active Substance: FENTANYL\FENTANYL CITRATE

REACTIONS (4)
  - Anaphylactic reaction [Unknown]
  - Stress [Unknown]
  - Hypoaesthesia [Unknown]
  - Dry mouth [Unknown]

NARRATIVE: CASE EVENT DATE: 20231002
